FAERS Safety Report 9719992 (Version 1)
Quarter: 2013Q4

REPORT INFORMATION
  Report Type: Spontaneous
  Country: US (occurrence: US)
  Receive Date: 20131128
  Receipt Date: 20131128
  Transmission Date: 20140711
  Serious: No
  Sender: FDA-Public Use
  Company Number: US-009507513-1311USA012072

PATIENT
  Age: 58 Year
  Sex: Female

DRUGS (3)
  1. NASONEX [Suspect]
     Indication: NASAL INFLAMMATION
     Dosage: 2 DF, QD; 2 SPRAYS TAKEN ONCE DAILY IN EACH NOSTRIL; AEROSOL
     Route: 045
     Dates: start: 201302
  2. NASONEX [Suspect]
     Indication: RHINITIS ALLERGIC
  3. FLOVENT [Concomitant]

REACTIONS (2)
  - Nasal discomfort [Not Recovered/Not Resolved]
  - Throat irritation [Not Recovered/Not Resolved]
